FAERS Safety Report 8398266 (Version 2)
Quarter: 2012Q4

REPORT INFORMATION
  Report Type: 
  Country: US (occurrence: US)
  Receive Date: 20120209
  Receipt Date: 20120912
  Transmission Date: 20130627
  Serious: No
  Sender: FDA-Public Use
  Company Number: US-BAYER-2012-013076

PATIENT
  Age: 41 Year
  Weight: 68 kg

DRUGS (1)
  1. ALEVE CAPLET/TABLET,MIDOL EXTENDED RELIEF CAPLET [Suspect]
     Indication: ARTHRITIS
     Dosage: 2 Tabs twice daily
     Route: 048
     Dates: start: 20111214, end: 20111221

REACTIONS (1)
  - Arthritis [None]
